FAERS Safety Report 20540618 (Version 1)
Quarter: 2022Q1

REPORT INFORMATION
  Report Type: Report from Study
  Country: US (occurrence: US)
  Receive Date: 20220302
  Receipt Date: 20220302
  Transmission Date: 20220423
  Serious: Yes (Hospitalization)
  Sender: FDA-Public Use
  Company Number: US-TAKEDA-US201606457

PATIENT
  Age: 59 Year
  Sex: Male
  Weight: 70.295 kg

DRUGS (31)
  1. TEDUGLUTIDE [Suspect]
     Active Substance: TEDUGLUTIDE
     Indication: Short-bowel syndrome
     Dosage: 1.8 MILLIGRAM, QD
     Route: 058
     Dates: start: 20140904, end: 20160126
  2. TEDUGLUTIDE [Suspect]
     Active Substance: TEDUGLUTIDE
     Indication: Short-bowel syndrome
     Dosage: 1.8 MILLIGRAM, QD
     Route: 058
     Dates: start: 20140904, end: 20160126
  3. TEDUGLUTIDE [Suspect]
     Active Substance: TEDUGLUTIDE
     Indication: Short-bowel syndrome
     Dosage: 1.8 MILLIGRAM, QD
     Route: 058
     Dates: start: 20140904, end: 20160126
  4. TEDUGLUTIDE [Suspect]
     Active Substance: TEDUGLUTIDE
     Indication: Short-bowel syndrome
     Dosage: 1.8 MILLIGRAM, QD
     Route: 058
     Dates: start: 20140904, end: 20160126
  5. TEDUGLUTIDE [Suspect]
     Active Substance: TEDUGLUTIDE
     Dosage: 1.8 MILLIGRAM, QD
     Route: 058
     Dates: start: 20160202
  6. TEDUGLUTIDE [Suspect]
     Active Substance: TEDUGLUTIDE
     Dosage: 1.8 MILLIGRAM, QD
     Route: 058
     Dates: start: 20160202
  7. TEDUGLUTIDE [Suspect]
     Active Substance: TEDUGLUTIDE
     Dosage: 1.8 MILLIGRAM, QD
     Route: 058
     Dates: start: 20160202
  8. TEDUGLUTIDE [Suspect]
     Active Substance: TEDUGLUTIDE
     Dosage: 1.8 MILLIGRAM, QD
     Route: 058
     Dates: start: 20160202
  9. TEDUGLUTIDE [Suspect]
     Active Substance: TEDUGLUTIDE
     Dosage: 1.800 MILLIGRAM, QD
     Route: 065
     Dates: start: 20160314
  10. TEDUGLUTIDE [Suspect]
     Active Substance: TEDUGLUTIDE
     Dosage: 1.800 MILLIGRAM, QD
     Route: 065
     Dates: start: 20160314
  11. TEDUGLUTIDE [Suspect]
     Active Substance: TEDUGLUTIDE
     Dosage: 1.800 MILLIGRAM, QD
     Route: 065
     Dates: start: 20160314
  12. TEDUGLUTIDE [Suspect]
     Active Substance: TEDUGLUTIDE
     Dosage: 1.800 MILLIGRAM, QD
     Route: 065
     Dates: start: 20160314
  13. TPN [Concomitant]
     Active Substance: AMINO ACIDS\DEXTROSE\ELECTROLYTES NOS\SOYBEAN OIL
     Indication: Nutritional supplementation
     Dosage: 4 LITERS WEEKLY, 2 DAYS A WEEK
     Route: 042
     Dates: start: 201501
  14. AMLODIPINE [Concomitant]
     Active Substance: AMLODIPINE BESYLATE
     Indication: Hypertension
     Dosage: 5 MG, 1X/DAY:QD
     Route: 048
     Dates: start: 20151103
  15. CALCIUM CARBONATE [Concomitant]
     Active Substance: CALCIUM CARBONATE
     Indication: Calcium deficiency
     Dosage: 1250 MG, 2X/DAY:BID
     Route: 048
     Dates: start: 20100304
  16. METOPROLOL SUCCINATE EXTENDED [Concomitant]
     Indication: Hypertension
     Dosage: 150 MG, 2X/DAY:BID
     Route: 048
     Dates: start: 20151103
  17. NITROGLYCERIN [Concomitant]
     Active Substance: NITROGLYCERIN
     Indication: Hypertension
     Dosage: 0.4 MG, AS REQ^D
     Route: 060
     Dates: start: 20150424
  18. OMEGA-3 FATTY ACIDS [Concomitant]
     Active Substance: OMEGA-3 FATTY ACIDS
     Indication: Malabsorption
     Dosage: 1000 MG, 2X/DAY:BID
     Route: 048
  19. OXYCODONE [Concomitant]
     Active Substance: OXYCODONE
     Indication: Back pain
     Dosage: 5 MG, AS REQ^D
     Route: 048
  20. PLAVIX [Concomitant]
     Active Substance: CLOPIDOGREL BISULFATE
     Indication: Myocardial infarction
     Dosage: 75 MG, 1X/DAY:QD
     Route: 048
  21. ZOLPIDEM TARTRATE [Concomitant]
     Active Substance: ZOLPIDEM TARTRATE
     Indication: Insomnia
     Dosage: 10 MG, AS REQ^D
     Route: 048
     Dates: start: 20150811
  22. FERROUS GLUCONATE [Concomitant]
     Active Substance: FERROUS GLUCONATE
     Indication: Anaemia
     Dosage: 325 MG, 2X/DAY:BID
     Route: 048
     Dates: start: 20111114
  23. FENOFIBRATE [Concomitant]
     Active Substance: FENOFIBRATE
     Indication: Hypertriglyceridaemia
     Dosage: 1 DF, 1X/DAY:QD
     Route: 048
     Dates: start: 20140818
  24. ANDROGEL 1.62% [Concomitant]
     Active Substance: TESTOSTERONE
     Indication: Hypogonadism
     Dosage: 40.5 MG, 1X/DAY:QD
     Route: 061
     Dates: start: 201512
  25. PREDNISOLONE 1% ACETATE [Concomitant]
     Indication: Corneal oedema
     Dosage: 1 GTT, 1X/DAY:QD
     Route: 047
  26. LORATADINE [Concomitant]
     Active Substance: LORATADINE
     Indication: Seasonal allergy
     Dosage: 10 MG, 1X/DAY:QD
     Route: 048
  27. FLUTICASONE PROPIONATE [Concomitant]
     Active Substance: FLUTICASONE PROPIONATE
     Indication: Seasonal allergy
     Dosage: 2 SPRAY, 1X/DAY:QD
     Route: 045
  28. ZOFRAN [Concomitant]
     Active Substance: ONDANSETRON HYDROCHLORIDE
     Indication: Nephrolithiasis
     Dosage: 4 MILLIGRAM
     Route: 042
     Dates: start: 20171102, end: 20171102
  29. ZOFRAN [Concomitant]
     Active Substance: ONDANSETRON HYDROCHLORIDE
     Indication: Ileus
     Dosage: 4.00 MILLIGRAM
     Route: 048
     Dates: start: 20170703, end: 20170705
  30. DILAUDID [Concomitant]
     Active Substance: HYDROMORPHONE HYDROCHLORIDE
     Indication: Nephrolithiasis
     Dosage: 2.00 MILLIGRAM
     Route: 048
     Dates: start: 20170810, end: 20170814
  31. DILAUDID [Concomitant]
     Active Substance: HYDROMORPHONE HYDROCHLORIDE
     Indication: Haematuria
     Dosage: 0.5 MILLIGRAM
     Route: 042
     Dates: start: 20171102, end: 20171102

REACTIONS (1)
  - Enteritis [Recovered/Resolved]

NARRATIVE: CASE EVENT DATE: 20160126
